FAERS Safety Report 6591351-3 (Version None)
Quarter: 2010Q1

REPORT INFORMATION
  Report Type: 
  Country: None (occurrence: None)
  Receive Date: 20100219
  Receipt Date: 20100208
  Transmission Date: 20100710
  Serious: Yes (Hospitalization)
  Sender: FDA-Public Use
  Company Number: JP-WYE-H13423610

PATIENT
  Sex: Female
  Weight: 45.03 kg

DRUGS (3)
  1. DESVENLAFAXINE SUCCINATE MONOHYDRATE [Suspect]
     Indication: MAJOR DEPRESSION
     Route: 048
     Dates: start: 20100130, end: 20100205
  2. PLACEBO [Suspect]
     Dosage: PLACEBO LEAD-IN THERAPY
     Route: 048
     Dates: start: 20100116, end: 20100129
  3. ETHANOL [Concomitant]
     Dosage: UNKNOWN
     Dates: start: 20100203, end: 20100203

REACTIONS (3)
  - CONDITION AGGRAVATED [None]
  - DEPRESSION [None]
  - DEPRESSION SUICIDAL [None]
